FAERS Safety Report 23369985 (Version 1)
Quarter: 2024Q1

REPORT INFORMATION
  Report Type: Spontaneous
  Country: US (occurrence: None)
  Receive Date: 20240105
  Receipt Date: 20240105
  Transmission Date: 20240410
  Serious: No
  Sender: FDA-Public Use
  Company Number: None

PATIENT
  Age: 74 Year
  Sex: Male
  Weight: 86.18 kg

DRUGS (17)
  1. VTAMA [Suspect]
     Active Substance: TAPINAROF
     Indication: Psoriasis
     Dosage: OTHER QUANTITY : OTHER;?FREQUENCY : DAILY;?
     Route: 058
     Dates: start: 20220630
  2. METFORMIN [Concomitant]
  3. ROSUVASTIN [Concomitant]
  4. METOPROLOL [Concomitant]
  5. Bethamethasone [Concomitant]
  6. EZETIMIBE [Concomitant]
     Active Substance: EZETIMIBE
  7. aspirin [Concomitant]
  8. VITAMIN D2 [Concomitant]
     Active Substance: ERGOCALCIFEROL
  9. INSULIN [Concomitant]
  10. SKYRIZI [Concomitant]
     Active Substance: RISANKIZUMAB-RZAA
  11. AMOXICILLIN [Concomitant]
  12. VITAMIN B12 [Concomitant]
     Active Substance: CYANOCOBALAMIN
  13. VITAMIN D3 [Concomitant]
     Active Substance: CHOLECALCIFEROL
  14. VITAMIN C [Concomitant]
     Active Substance: ASCORBIC ACID
  15. multi vitamin [Concomitant]
  16. CITRUCEL [Concomitant]
  17. OMEPRAZOLE [Concomitant]
     Active Substance: OMEPRAZOLE

REACTIONS (5)
  - Erythema [None]
  - Burning sensation [None]
  - Pruritus [None]
  - Headache [None]
  - Swelling [None]

NARRATIVE: CASE EVENT DATE: 20220630
